FAERS Safety Report 4874056-6 (Version None)
Quarter: 2006Q1

REPORT INFORMATION
  Report Type: 
  Country: None (occurrence: None)
  Receive Date: 20060104
  Receipt Date: 20051220
  Transmission Date: 20060701
  Serious: Yes (Hospitalization)
  Sender: FDA-Public Use
  Company Number: FACT0500738

PATIENT
  Age: 25 Year
  Sex: Male
  Weight: 57.1 kg

DRUGS (10)
  1. FACTIVE [Suspect]
     Indication: RESPIRATORY TRACT INFECTION BACTERIAL
     Dosage: 320 MG, QD, ORAL
     Route: 048
  2. SYNTHROID (LEVOTHYROXINE SODIUM) TABLET [Concomitant]
  3. HUMALOG [Concomitant]
  4. HUMULIN (INSULIN HUMAN, INSULIN ISOPHANE, HUMN BIOSYNTHETIC) [Concomitant]
  5. NASACORT AQ (TRIAMCINOLONE ACETONIDE) [Concomitant]
  6. ZYRTEC-D (CETIRIZINE HYDROCHLORIDE, PSEUDOEPHEDRINE HYDROCHLORIDE) TAB [Concomitant]
  7. GUAIFENESIN W/PSEUDOEPHEDRINE (GUAIFENESIN, PSEUDOEPHEDRINE) TABLET [Concomitant]
  8. TRIAMCINOLONE ACETONIDE [Concomitant]
  9. ENTEX PSE (GUAIFENESIN, PSEUDOEPHEDRINE HYDROCHLORIDE) [Concomitant]
  10. KENALOG [Concomitant]

REACTIONS (14)
  - ALANINE AMINOTRANSFERASE DECREASED [None]
  - ASPARTATE AMINOTRANSFERASE DECREASED [None]
  - BLOOD PRESSURE DIASTOLIC DECREASED [None]
  - ECCHYMOSIS [None]
  - GINGIVAL PAIN [None]
  - INTERNATIONAL NORMALISED RATIO DECREASED [None]
  - LABORATORY TEST ABNORMAL [None]
  - LYMPHOCYTE COUNT DECREASED [None]
  - NEUTROPHIL COUNT INCREASED [None]
  - PAIN IN EXTREMITY [None]
  - PETECHIAE [None]
  - RETINAL HAEMORRHAGE [None]
  - THROMBOCYTOPENIA [None]
  - WHITE BLOOD CELL COUNT INCREASED [None]
